FAERS Safety Report 9080918 (Version 2)
Quarter: 2013Q1

REPORT INFORMATION
  Report Type: Spontaneous
  Country: US (occurrence: US)
  Receive Date: 20130218
  Receipt Date: 20130219
  Transmission Date: 20140127
  Serious: No
  Sender: FDA-Public Use
  Company Number: US-JNJFOC-20130202912

PATIENT
  Sex: Male

DRUGS (1)
  1. DURAGESIC [Suspect]
     Indication: JOINT INJURY
     Route: 062

REACTIONS (5)
  - Pain [Unknown]
  - Withdrawal syndrome [Unknown]
  - Malaise [Unknown]
  - Pyrexia [Unknown]
  - Drug dose omission [Unknown]
